APPROVED DRUG PRODUCT: POLYETHYLENE GLYCOL 3350 AND ELECTROLYTES
Active Ingredient: POLYETHYLENE GLYCOL 3350; POTASSIUM CHLORIDE; SODIUM BICARBONATE; SODIUM CHLORIDE; SODIUM SULFATE ANHYDROUS
Strength: 240GM/BOT;2.98GM/BOT;6.72GM/BOT;5.84GM/BOT;22.72GM/BOT
Dosage Form/Route: FOR SOLUTION;ORAL
Application: A090712 | Product #001
Applicant: PADDOCK LABORATORIES LLC
Approved: Feb 25, 2010 | RLD: No | RS: No | Type: DISCN